FAERS Safety Report 5319957-X (Version None)
Quarter: 2007Q2

REPORT INFORMATION
  Report Type: 
  Country: None (occurrence: None)
  Receive Date: 20070209
  Receipt Date: 20061020
  Transmission Date: 20071010
  Serious: Yes (Hospitalization)
  Sender: FDA-Public Use
  Company Number: 200617899US

PATIENT
  Age: 57 Year
  Sex: Female

DRUGS (6)
  1. APIDRA [Suspect]
     Indication: DIABETES MELLITUS NON-INSULIN-DEPENDENT
     Dates: start: 20060812
  2. OPTICLIK [Suspect]
     Indication: DIABETES MELLITUS NON-INSULIN-DEPENDENT
     Dates: start: 20060812
  3. LANTUS [Concomitant]
  4. PRAVASTATIN SODIUM (PRAVACHOL) [Concomitant]
  5. ZETIA [Concomitant]
  6. NAPROXEN (NAPROSYN RISEDRONATE SODIUM) (ACTONEL) [Concomitant]

REACTIONS (1)
  - HYPOGLYCAEMIA [None]
